FAERS Safety Report 25812349 (Version 1)
Quarter: 2025Q3

REPORT INFORMATION
  Report Type: Spontaneous
  Country: US (occurrence: None)
  Receive Date: 20250916
  Receipt Date: 20250916
  Transmission Date: 20251020
  Serious: Yes (unspecified)
  Sender: FDA-CTU
  Company Number: None

PATIENT
  Age: 46 Year
  Sex: Female
  Weight: 51.75 kg

DRUGS (10)
  1. POLYLACTIDE, L- [Suspect]
     Active Substance: POLYLACTIDE, L-
     Indication: Scar
     Dates: start: 20231005, end: 20231005
  2. KENALOG [Suspect]
     Active Substance: TRIAMCINOLONE ACETONIDE
  3. FLUOROURACIL [Suspect]
     Active Substance: FLUOROURACIL
  4. UNSPECIFIED INGREDIENT [Suspect]
     Active Substance: UNSPECIFIED INGREDIENT
  5. UNSPECIFIED INGREDIENT [Concomitant]
     Active Substance: UNSPECIFIED INGREDIENT
  6. RETIN-A [Concomitant]
     Active Substance: TRETINOIN
  7. MINOXIDIL [Concomitant]
     Active Substance: MINOXIDIL
  8. VITAMINS [Concomitant]
     Active Substance: VITAMINS
  9. MAGNESIUM [Concomitant]
     Active Substance: MAGNESIUM
  10. BIOTIN [Concomitant]
     Active Substance: BIOTIN

REACTIONS (3)
  - Hypertrophic scar [None]
  - Injection site indentation [None]
  - Capripox viral infection [None]

NARRATIVE: CASE EVENT DATE: 20231005
